FAERS Safety Report 4283289-1 (Version None)
Quarter: 2004Q1

REPORT INFORMATION
  Report Type: 
  Country: None (occurrence: None)
  Receive Date: 20040129
  Receipt Date: 20040121
  Transmission Date: 20041129
  Serious: Yes (Other)
  Sender: FDA-Public Use
  Company Number: K200400074

PATIENT
  Age: 17 Year
  Sex: Male

DRUGS (2)
  1. KEMADRIN [Suspect]
     Indication: PSYCHOTIC DISORDER
     Dosage: SEE IMAGE
  2. RISPERIDONE [Suspect]
     Indication: PSYCHOTIC DISORDER

REACTIONS (3)
  - DYSTONIA [None]
  - OCULOGYRATION [None]
  - VOMITING [None]
